FAERS Safety Report 7180031-1 (Version None)
Quarter: 2010Q4

REPORT INFORMATION
  Report Type: 
  Country: None (occurrence: None)
  Receive Date: 20101221
  Receipt Date: 20101209
  Transmission Date: 20110411
  Serious: Yes (Death, Hospitalization)
  Sender: FDA-Public Use
  Company Number: US-ACTELION-A-US2010-40876

PATIENT

DRUGS (2)
  1. BOSENTAN TABLET UNKNOWN US MG [Suspect]
     Indication: PULMONARY ARTERIAL HYPERTENSION
     Dosage: UNK
     Route: 048
     Dates: start: 20100806
  2. CALCIUM CHANNEL BLOCKERS [Concomitant]

REACTIONS (7)
  - CARDIAC FAILURE CONGESTIVE [None]
  - CORONARY ARTERY DISEASE [None]
  - CREST SYNDROME [None]
  - PNEUMONIA [None]
  - PULMONARY ARTERIAL HYPERTENSION [None]
  - PULMONARY FIBROSIS [None]
  - RESPIRATORY FAILURE [None]
